FAERS Safety Report 13893843 (Version 1)
Quarter: 2017Q3

REPORT INFORMATION
  Report Type: Spontaneous
  Country: US (occurrence: US)
  Receive Date: 20170822
  Receipt Date: 20170822
  Transmission Date: 20171127
  Serious: No
  Sender: FDA-Public Use
  Company Number: US-GALDERMA-US17001138

PATIENT
  Sex: Male

DRUGS (1)
  1. METRONIDAZOLE GEL, 1% [Suspect]
     Active Substance: METRONIDAZOLE
     Indication: ROSACEA
     Route: 061

REACTIONS (3)
  - Acne [Not Recovered/Not Resolved]
  - Drug ineffective [Not Recovered/Not Resolved]
  - Erythema [Not Recovered/Not Resolved]
